FAERS Safety Report 4552270-7 (Version None)
Quarter: 2005Q1

REPORT INFORMATION
  Report Type: 
  Country: None (occurrence: None)
  Receive Date: 20050114
  Receipt Date: 20041221
  Transmission Date: 20050727
  Serious: Yes (Hospitalization)
  Sender: FDA-Public Use
  Company Number: PHHO2004CA18257

PATIENT
  Age: 51 Year
  Sex: Female

DRUGS (3)
  1. NEORAL [Suspect]
     Indication: RENAL TRANSPLANT
     Dosage: 150 MG, BID
     Route: 048
     Dates: start: 20041025
  2. PREDNISONE [Concomitant]
     Indication: RENAL TRANSPLANT
     Dosage: 17.5 MG / DAY
     Route: 048
     Dates: start: 20041126
  3. FTY720 VS MYCOPHENOLATE MOFETIL [Suspect]
     Indication: RENAL TRANSPLANT
     Dosage: CODE NOT BROKEN
     Route: 048
     Dates: start: 20040916

REACTIONS (5)
  - ANGIOPLASTY [None]
  - BIOPSY KIDNEY ABNORMAL [None]
  - DRUG INEFFECTIVE [None]
  - RENAL ARTERY STENOSIS [None]
  - RENAL IMPAIRMENT [None]
